FAERS Safety Report 8006965-3 (Version None)
Quarter: 2011Q4

REPORT INFORMATION
  Report Type: 
  Country: None (occurrence: None)
  Receive Date: 20111227
  Receipt Date: 20111221
  Transmission Date: 20120403
  Serious: Yes (Hospitalization)
  Sender: FDA-Public Use
  Company Number: DK-JNJFOC-20111205977

PATIENT
  Sex: Male
  Weight: 80 kg

DRUGS (11)
  1. CYCLOPHOSPHAMIDE [Suspect]
     Indication: DIFFUSE LARGE B-CELL LYMPHOMA
     Route: 042
     Dates: start: 20111117
  2. PREDNISONE TAB [Suspect]
     Indication: DIFFUSE LARGE B-CELL LYMPHOMA
     Route: 048
  3. PREDNISONE TAB [Suspect]
     Route: 048
     Dates: start: 20111117
  4. DOXORUBICIN HCL [Suspect]
     Indication: DIFFUSE LARGE B-CELL LYMPHOMA
     Route: 042
  5. RITUXIMAB [Suspect]
     Route: 042
     Dates: start: 20111117
  6. VINCRISTINE [Suspect]
     Indication: DIFFUSE LARGE B-CELL LYMPHOMA
     Route: 042
  7. DOXORUBICIN HCL [Suspect]
     Route: 042
     Dates: start: 20111117
  8. NEUPOGEN [Suspect]
     Indication: DIFFUSE LARGE B-CELL LYMPHOMA
     Route: 058
     Dates: start: 20111118
  9. RITUXIMAB [Suspect]
     Indication: DIFFUSE LARGE B-CELL LYMPHOMA
     Route: 042
  10. VINCRISTINE [Suspect]
     Route: 042
     Dates: start: 20111117
  11. CYCLOPHOSPHAMIDE [Suspect]
     Route: 042

REACTIONS (1)
  - UPPER RESPIRATORY TRACT INFECTION [None]
